FAERS Safety Report 19949912 (Version 2)
Quarter: 2022Q1

REPORT INFORMATION
  Report Type: Other
  Country: US (occurrence: None)
  Receive Date: 20211013
  Receipt Date: 20220317
  Transmission Date: 20220423
  Serious: Yes (Hospitalization, Other)
  Sender: FDA-Public Use
  Company Number: US-ROCHE-2928027

PATIENT
  Age: 55 Year
  Sex: Female
  Weight: 54.934 kg

DRUGS (8)
  1. OCREVUS [Suspect]
     Active Substance: OCRELIZUMAB
     Indication: Relapsing-remitting multiple sclerosis
     Route: 042
     Dates: start: 201905
  2. THEANINE [Concomitant]
     Active Substance: THEANINE
     Route: 048
  3. VITAMIN C [Concomitant]
     Active Substance: ASCORBIC ACID
     Dosage: PILL
     Route: 048
  4. ZINC [Concomitant]
     Active Substance: ZINC
     Dosage: PILL
     Route: 048
  5. MAGNESIUM [Concomitant]
     Active Substance: MAGNESIUM
     Indication: Blood magnesium decreased
     Dosage: PILL
     Route: 048
  6. POTASSIUM [Concomitant]
     Active Substance: POTASSIUM
     Indication: Blood potassium decreased
     Dosage: LIQUID
     Route: 048
  7. CHOLECALCIFEROL [Concomitant]
     Active Substance: CHOLECALCIFEROL
     Dosage: PILL
     Route: 048
  8. HERBALS\SAW PALMETTO [Concomitant]
     Active Substance: HERBALS\SAW PALMETTO
     Indication: Alopecia
     Dosage: 2 UNITS=TEASPOONS OIL
     Route: 048

REACTIONS (12)
  - Cough [Not Recovered/Not Resolved]
  - Oxygen saturation decreased [Unknown]
  - Bronchial obstruction [Recovered/Resolved]
  - Vomiting [Unknown]
  - Rib fracture [Recovered/Resolved]
  - COVID-19 [Recovered/Resolved]
  - Pain [Not Recovered/Not Resolved]
  - Alopecia [Recovered/Resolved]
  - Fungal infection [Unknown]
  - Sensory disturbance [Unknown]
  - Dyspnoea [Not Recovered/Not Resolved]
  - Abdominal distension [Unknown]

NARRATIVE: CASE EVENT DATE: 20191001
